FAERS Safety Report 8290467-3 (Version None)
Quarter: 2012Q2

REPORT INFORMATION
  Report Type: 
  Country: None (occurrence: None)
  Receive Date: 20120417
  Receipt Date: 20110523
  Transmission Date: 20120825
  Serious: No
  Sender: FDA-Public Use
  Company Number: US-ASTRAZENECA-2011SE31274

PATIENT
  Age: 78 Year
  Sex: Female

DRUGS (3)
  1. SIMVASTATIN [Concomitant]
  2. NORVASC [Concomitant]
     Indication: HYPERTENSION
  3. NEXIUM [Suspect]
     Indication: GASTROOESOPHAGEAL REFLUX DISEASE
     Route: 048
     Dates: start: 20060705

REACTIONS (2)
  - OSTEOPENIA [None]
  - ARTHRALGIA [None]
